FAERS Safety Report 17183173 (Version 5)
Quarter: 2020Q1

REPORT INFORMATION
  Report Type: Spontaneous
  Country: BE (occurrence: BE)
  Receive Date: 20191220
  Receipt Date: 20200213
  Transmission Date: 20200409
  Serious: Yes (Disabling, Other)
  Sender: FDA-Public Use
  Company Number: BE-ROCHE-2504659

PATIENT
  Age: 50 Year
  Sex: Female

DRUGS (2)
  1. XOLAIR [Suspect]
     Active Substance: OMALIZUMAB
     Indication: CHRONIC SPONTANEOUS URTICARIA
     Route: 065
     Dates: start: 201912
  2. XOLAIR [Suspect]
     Active Substance: OMALIZUMAB
     Route: 065
     Dates: start: 20191129, end: 20191129

REACTIONS (10)
  - Blood immunoglobulin A increased [Unknown]
  - Pruritus [Recovering/Resolving]
  - Rash [Recovering/Resolving]
  - Blood thyroid stimulating hormone increased [Unknown]
  - Toxic skin eruption [Unknown]
  - Insomnia [Recovering/Resolving]
  - Rash erythematous [Unknown]
  - Type IV hypersensitivity reaction [Unknown]
  - Dermatitis exfoliative generalised [Recovering/Resolving]
  - Burning sensation [Recovering/Resolving]
